FAERS Safety Report 22211157 (Version 1)
Quarter: 2023Q2

REPORT INFORMATION
  Report Type: Spontaneous
  Country: DE (occurrence: DE)
  Receive Date: 20230414
  Receipt Date: 20230414
  Transmission Date: 20230722
  Serious: Yes (Other)
  Sender: FDA-Public Use
  Company Number: DE-UCBSA-001787

PATIENT
  Age: 71 Year
  Sex: Male

DRUGS (3)
  1. NEUPRO [Suspect]
     Active Substance: ROTIGOTINE
     Indication: Parkinson^s disease
     Dosage: 8 MG, ONCE DAILY (QD)
     Route: 062
  2. REQUIP [Concomitant]
     Active Substance: ROPINIROLE HYDROCHLORIDE
     Indication: Parkinson^s disease
     Dosage: 8MG DAILY
  3. LEVODOPA/CARBIDOPA NEURAXPHARM [Concomitant]
     Indication: Parkinson^s disease
     Dosage: 3 TABLETS DAILY.

REACTIONS (9)
  - Erectile dysfunction [Unknown]
  - Sudden onset of sleep [Unknown]
  - Dyskinesia [Unknown]
  - Confusional state [Unknown]
  - Gastrooesophageal reflux disease [Unknown]
  - Fatigue [Unknown]
  - Breast swelling [Unknown]
  - Breast pain [Unknown]
  - Dyspepsia [Unknown]
